FAERS Safety Report 24759877 (Version 1)
Quarter: 2024Q4

REPORT INFORMATION
  Report Type: Spontaneous
  Country: ZA (occurrence: ZA)
  Receive Date: 20241220
  Receipt Date: 20241220
  Transmission Date: 20250114
  Serious: Yes (Hospitalization)
  Sender: AMGEN
  Company Number: ZA-SERVIER-S24016526

PATIENT
  Age: 90 Year
  Sex: Female

DRUGS (11)
  1. IVABRADINE HYDROCHLORIDE [Suspect]
     Active Substance: IVABRADINE HYDROCHLORIDE
     Indication: Angina pectoris
     Dosage: 5 MG TAKE ONE TABLET ONCE DAILY
     Route: 048
  2. LIBRAX [Concomitant]
     Active Substance: CHLORDIAZEPOXIDE HYDROCHLORIDE\CLIDINIUM BROMIDE
     Indication: Abdominal pain upper
     Dosage: 2 DOSAGE FORM, QD (TAKE ONE TABLET TWICE A DAY)
     Route: 048
  3. LEVOFLOXACIN [Concomitant]
     Active Substance: LEVOFLOXACIN
     Indication: Product used for unknown indication
     Dosage: 500 MG TAKE ONE TABLET ONCE DAILY AFTER A MEAL
     Route: 048
  4. LACTEOL FORTE [Concomitant]
     Indication: Product used for unknown indication
     Dosage: 2 DOSAGE FORM, QD (TAKE ONE CAPSULE TWICE A DAY)
     Route: 048
  5. Spiractin [Concomitant]
     Indication: Hypertension
     Dosage: 25 MILLIGRAM, QD (25 MG TAKE ONE TABLET ONCE DAILY)
     Route: 048
  6. SIMVASTATIN [Concomitant]
     Active Substance: SIMVASTATIN
     Indication: Blood cholesterol
     Dosage: 10 MILLIGRAM, QD (10 MG TAKE ONE TABLET AT NIGHT)
     Route: 048
  7. ZOPICLONE [Concomitant]
     Active Substance: ZOPICLONE
     Indication: Drug therapy
     Dosage: 7.5 MILLIGRAM, QD (TAKE ONE TABLET AT NIGHT)
     Route: 048
  8. ZOPICLONE [Concomitant]
     Active Substance: ZOPICLONE
     Indication: Insomnia
  9. Ferrimed [Concomitant]
     Indication: Product used for unknown indication
     Dosage: 50 MG AS DIRECTED
     Route: 048
  10. CLOBAZAM [Concomitant]
     Active Substance: CLOBAZAM
     Indication: Anxiety
     Dosage: 5 MG TAKE ONE CAPSULE TWICE A DAY
     Route: 048
  11. ECOTRIN [Concomitant]
     Active Substance: ASPIRIN
     Indication: Anticoagulant therapy
     Dosage: 81 MG TAKE ONE TABLET ONCE DAILY
     Route: 048

REACTIONS (2)
  - Hospitalisation [Unknown]
  - Product use issue [Recovered/Resolved]

NARRATIVE: CASE EVENT DATE: 20240725
